FAERS Safety Report 10992620 (Version 2)
Quarter: 2015Q2

REPORT INFORMATION
  Report Type: Spontaneous
  Country: US (occurrence: US)
  Receive Date: 20150406
  Receipt Date: 20150525
  Transmission Date: 20150821
  Serious: Yes (Other)
  Sender: FDA-Public Use
  Company Number: US-JNJFOC-20131003465

PATIENT
  Age: 26 Year
  Sex: Male

DRUGS (1)
  1. REMICADE [Suspect]
     Active Substance: INFLIXIMAB
     Indication: CROHN^S DISEASE
     Dosage: STARTED INFLIXIMAB ABOUT 9 MONTHS AGO.
     Route: 042
     Dates: start: 2013

REACTIONS (1)
  - Abscess [Unknown]

NARRATIVE: CASE EVENT DATE: 2013
